FAERS Safety Report 4661839-0 (Version None)
Quarter: 2005Q2

REPORT INFORMATION
  Report Type: 
  Country: None (occurrence: None)
  Receive Date: 20050513
  Receipt Date: 20050503
  Transmission Date: 20051028
  Serious: Yes (Hospitalization, Other)
  Sender: FDA-Public Use
  Company Number: PE-BRISTOL-MYERS SQUIBB COMPANY-12954657

PATIENT
  Age: 33 Year
  Sex: Male

DRUGS (2)
  1. ATAZANAVIR [Suspect]
     Indication: HIV INFECTION
     Route: 048
     Dates: start: 20010101, end: 20050418
  2. COMBIVIR [Concomitant]
     Dates: start: 20010101

REACTIONS (5)
  - ACUTE RESPIRATORY FAILURE [None]
  - COAGULOPATHY [None]
  - CONVULSION [None]
  - METABOLIC ACIDOSIS [None]
  - RENAL FAILURE ACUTE [None]
